FAERS Safety Report 10197445 (Version 1)
Quarter: 2014Q2

REPORT INFORMATION
  Report Type: Spontaneous
  Country: US (occurrence: None)
  Receive Date: 20140523
  Receipt Date: 20140523
  Transmission Date: 20141212
  Serious: Yes (Life-Threatening)
  Sender: FDA-Public Use
  Company Number: None

PATIENT
  Age: 66 Year
  Sex: Female
  Weight: 63.5 kg

DRUGS (1)
  1. LEXAPRO 10 MG [Suspect]
     Indication: DEPRESSION
     Dosage: 1; ONE DAILY
     Dates: start: 20130715, end: 20130724

REACTIONS (1)
  - Suicidal ideation [None]
